FAERS Safety Report 16341947 (Version 3)
Quarter: 2019Q2

REPORT INFORMATION
  Report Type: Report from Study
  Country: None (occurrence: GB)
  Receive Date: 20190522
  Receipt Date: 20190621
  Transmission Date: 20190711
  Serious: Yes (Hospitalization, Other)
  Sender: FDA-Public Use
  Company Number: GB-ABBVIE-19S-167-2789985-00

PATIENT
  Age: 78 Year
  Sex: Female
  Weight: 60.38 kg

DRUGS (2)
  1. DUODOPA [Suspect]
     Active Substance: CARBIDOPA\LEVODOPA
     Route: 050
     Dates: start: 20181204
  2. DUODOPA [Suspect]
     Active Substance: CARBIDOPA\LEVODOPA
     Indication: PARKINSON^S DISEASE
     Dosage: 100ML CASSETTE??5MG/1ML??20MG/1ML??ONE DAILY
     Route: 050

REACTIONS (5)
  - Fall [Not Recovered/Not Resolved]
  - Balance disorder [Unknown]
  - Hip arthroplasty [Recovering/Resolving]
  - Walking aid user [Unknown]
  - Hip fracture [Unknown]

NARRATIVE: CASE EVENT DATE: 2019
